FAERS Safety Report 16715811 (Version 1)
Quarter: 2019Q3

REPORT INFORMATION
  Report Type: Spontaneous
  Country: US (occurrence: US)
  Receive Date: 20190819
  Receipt Date: 20190819
  Transmission Date: 20191005
  Serious: Yes (Life-Threatening, Other)
  Sender: FDA-Public Use
  Company Number: US-PFIZER INC-2019354560

PATIENT
  Age: 58 Year

DRUGS (1)
  1. EFFEXOR XR [Suspect]
     Active Substance: VENLAFAXINE HYDROCHLORIDE
     Indication: SUICIDAL IDEATION
     Dosage: UNK

REACTIONS (6)
  - Accident [Unknown]
  - Off label use [Unknown]
  - Cardiac disorder [Unknown]
  - Learning disability [Unknown]
  - Emphysema [Unknown]
  - Drug effective for unapproved indication [Unknown]
